FAERS Safety Report 11430074 (Version 5)
Quarter: 2016Q2

REPORT INFORMATION
  Report Type: Spontaneous
  Country: US (occurrence: US)
  Receive Date: 20150828
  Receipt Date: 20160629
  Transmission Date: 20160815
  Serious: Yes (Hospitalization, Other)
  Sender: FDA-Public Use
  Company Number: PHEH2014US019747

PATIENT
  Age: 7 Year
  Sex: Female
  Weight: 23 kg

DRUGS (3)
  1. MULTI VIT [Concomitant]
     Indication: PRODUCT USED FOR UNKNOWN INDICATION
     Dosage: UNK
     Route: 065
  2. TRILEPTAL [Suspect]
     Active Substance: OXCARBAZEPINE
     Dosage: 600 MG, BID
     Route: 048
  3. TRILEPTAL [Suspect]
     Active Substance: OXCARBAZEPINE
     Indication: SEIZURE
     Dosage: 12.5 ML (420 MG TWICE A DAY) BID
     Route: 048
     Dates: start: 20090608

REACTIONS (9)
  - Product quality issue [Not Recovered/Not Resolved]
  - Drug ineffective [Not Recovered/Not Resolved]
  - Anticonvulsant drug level decreased [Not Recovered/Not Resolved]
  - Seizure cluster [Unknown]
  - Gastrointestinal disorder [Unknown]
  - Seizure [Recovering/Resolving]
  - Status epilepticus [Not Recovered/Not Resolved]
  - Vomiting [Recovered/Resolved]
  - Malaise [Unknown]

NARRATIVE: CASE EVENT DATE: 20160129
